FAERS Safety Report 7085273-1 (Version None)
Quarter: 2010Q4

REPORT INFORMATION
  Report Type: 
  Country: None (occurrence: None)
  Receive Date: 20101008
  Receipt Date: 20091104
  Transmission Date: 20110411
  Serious: Yes (Hospitalization)
  Sender: FDA-Public Use
  Company Number: 2009SP034563

PATIENT
  Age: 59 Year
  Sex: Female

DRUGS (1)
  1. TEMODAR [Suspect]
     Indication: ASTROCYTOMA
     Dosage: 140 MG;PO ; 280 MG;PO ; 140 MG;PO
     Route: 048

REACTIONS (1)
  - ANAPHYLACTIC REACTION [None]
